FAERS Safety Report 6828341-9 (Version None)
Quarter: 2010Q3

REPORT INFORMATION
  Report Type: 
  Country: None (occurrence: None)
  Receive Date: 20100709
  Receipt Date: 20070205
  Transmission Date: 20110219
  Serious: No
  Sender: FDA-Public Use
  Company Number: US-PFIZER INC-2007010542

PATIENT
  Sex: Female
  Weight: 58.97 kg

DRUGS (10)
  1. CHANTIX [Suspect]
     Indication: SMOKING CESSATION THERAPY
     Route: 048
     Dates: start: 20070123
  2. GLUCOVANCE [Concomitant]
  3. ZYPREXA [Concomitant]
  4. WELLBUTRIN [Concomitant]
  5. ZETIA [Concomitant]
  6. ALLEGRA [Concomitant]
  7. CELEXA [Concomitant]
  8. VALSARTAN [Concomitant]
  9. SYNTHROID [Concomitant]
  10. LIPITOR [Concomitant]

REACTIONS (1)
  - DRUG INEFFECTIVE [None]
